FAERS Safety Report 7377021-2 (Version None)
Quarter: 2011Q1

REPORT INFORMATION
  Report Type: 
  Country: None (occurrence: None)
  Receive Date: 20110328
  Receipt Date: 20110318
  Transmission Date: 20110831
  Serious: No
  Sender: FDA-Public Use
  Company Number: US-BIOGENIDEC-2010BI044314

PATIENT
  Age: 48 Year
  Sex: Male

DRUGS (1)
  1. TYSABRI [Suspect]
     Indication: MULTIPLE SCLEROSIS
     Route: 042
     Dates: start: 20100628

REACTIONS (5)
  - BACK PAIN [None]
  - FATIGUE [None]
  - MULTIPLE SCLEROSIS [None]
  - TREMOR [None]
  - COORDINATION ABNORMAL [None]
